FAERS Safety Report 4393200-0 (Version None)
Quarter: 2004Q3

REPORT INFORMATION
  Report Type: 
  Country: None (occurrence: None)
  Receive Date: 20040702
  Receipt Date: 20040623
  Transmission Date: 20050211
  Serious: Yes (Hospitalization)
  Sender: FDA-Public Use
  Company Number: IT-JNJFOC-20040606656

PATIENT
  Age: 55 Year
  Sex: Male

DRUGS (3)
  1. REMICADE [Suspect]
     Indication: RHEUMATOID ARTHRITIS
     Dosage: 200 MG; INTRAVENOUS
     Route: 042
     Dates: start: 20021023, end: 20040617
  2. METHOTREXATE [Concomitant]
  3. ARAVA [Concomitant]

REACTIONS (2)
  - HYPERSENSITIVITY [None]
  - INFUSION RELATED REACTION [None]
